FAERS Safety Report 8553931-5 (Version None)
Quarter: 2012Q3

REPORT INFORMATION
  Report Type: 
  Country: None (occurrence: None)
  Receive Date: 20120731
  Receipt Date: 20120725
  Transmission Date: 20120928
  Serious: Yes (Other)
  Sender: FDA-Public Use
  Company Number: US-BAYER-2012-031628

PATIENT
  Age: 75 Year
  Sex: Female

DRUGS (2)
  1. SILVER COLLOIDAL [Concomitant]
  2. BETASERON [Suspect]
     Indication: MULTIPLE SCLEROSIS
     Dosage: UNK UNK, QOD
     Dates: start: 20111208, end: 20120207

REACTIONS (5)
  - INJECTION SITE PAIN [None]
  - INJECTION SITE CELLULITIS [None]
  - ACTIVITIES OF DAILY LIVING IMPAIRED [None]
  - INJECTION SITE SCAB [None]
  - INJECTION SITE RASH [None]
